FAERS Safety Report 15711303 (Version 4)
Quarter: 2020Q2

REPORT INFORMATION
  Report Type: Report from Study
  Country: US (occurrence: US)
  Receive Date: 20181211
  Receipt Date: 20200505
  Transmission Date: 20200713
  Serious: Yes (Death, Hospitalization)
  Sender: FDA-Public Use
  Company Number: US-ACTELION-A-US2018-183544

PATIENT
  Sex: Female
  Weight: 65.76 kg

DRUGS (2)
  1. REVATIO [Concomitant]
     Active Substance: SILDENAFIL CITRATE
  2. TRACLEER [Suspect]
     Active Substance: BOSENTAN
     Indication: PULMONARY ARTERIAL HYPERTENSION
     Dosage: 125 MG, BID
     Route: 048

REACTIONS (7)
  - Death [Fatal]
  - Calcinosis [Unknown]
  - Nervousness [Unknown]
  - Anxiety [Unknown]
  - Dyspnoea [Unknown]
  - Muscular weakness [Unknown]
  - Dizziness [Unknown]
